FAERS Safety Report 10661360 (Version 1)
Quarter: 2014Q4

REPORT INFORMATION
  Report Type: Spontaneous
  Country: US (occurrence: None)
  Receive Date: 20141217
  Receipt Date: 20141217
  Transmission Date: 20150529
  Serious: Yes (Death)
  Sender: FDA-Public Use
  Company Number: None

PATIENT
  Age: 15 Year
  Sex: Female
  Weight: 58.3 kg

DRUGS (1)
  1. CEFTRIAXONE. [Suspect]
     Active Substance: CEFTRIAXONE

REACTIONS (6)
  - Pupil fixed [None]
  - Cardiac arrest [None]
  - Dyspnoea [None]
  - Blood pressure decreased [None]
  - Poor peripheral circulation [None]
  - Unresponsive to stimuli [None]

NARRATIVE: CASE EVENT DATE: 20140917
